FAERS Safety Report 7919851-1 (Version None)
Quarter: 2011Q4

REPORT INFORMATION
  Report Type: 
  Country: None (occurrence: None)
  Receive Date: 20111117
  Receipt Date: 20111109
  Transmission Date: 20120403
  Serious: Yes (Hospitalization, Other)
  Sender: FDA-Public Use
  Company Number: US-AMGEN-USASP2011056776

PATIENT
  Age: 52 Year
  Sex: Female

DRUGS (2)
  1. ENBREL [Suspect]
     Indication: RHEUMATOID ARTHRITIS
     Dosage: 50 MG, QWK
     Dates: start: 20081212, end: 20110501
  2. CYTOXAN [Concomitant]
     Dosage: UNK

REACTIONS (6)
  - HEPATIC CIRRHOSIS [None]
  - HAEMATURIA [None]
  - HEPATIC STEATOSIS [None]
  - MALAISE [None]
  - RENAL FAILURE [None]
  - NASOPHARYNGITIS [None]
